FAERS Safety Report 7430438-X (Version None)
Quarter: 2011Q2

REPORT INFORMATION
  Report Type: 
  Country: None (occurrence: None)
  Receive Date: 20110421
  Receipt Date: 20100907
  Transmission Date: 20111010
  Serious: No
  Sender: FDA-Public Use
  Company Number: US-ASTRAZENECA-2010SE42082

PATIENT
  Age: 44 Year
  Sex: Female
  Weight: 95.3 kg

DRUGS (1)
  1. TOPROL-XL [Suspect]
     Indication: ARRHYTHMIA
     Route: 048
     Dates: start: 19990101

REACTIONS (2)
  - ERYTHEMA [None]
  - BURNING SENSATION [None]
